FAERS Safety Report 8244589-3 (Version None)
Quarter: 2012Q1

REPORT INFORMATION
  Report Type: 
  Country: None (occurrence: None)
  Receive Date: 20120329
  Receipt Date: 20120320
  Transmission Date: 20120608
  Serious: Yes (Other)
  Sender: FDA-Public Use
  Company Number: US-JNJFOC-20120311403

PATIENT
  Sex: Female

DRUGS (4)
  1. INVEGA SUSTENNA [Suspect]
     Indication: PRODUCT USED FOR UNKNOWN INDICATION
     Route: 030
  2. HALDOL [Suspect]
     Indication: PRODUCT USED FOR UNKNOWN INDICATION
     Route: 065
  3. RISPERDAL CONSTA [Suspect]
     Indication: PRODUCT USED FOR UNKNOWN INDICATION
     Route: 030
  4. BENADRYL [Suspect]
     Indication: SLEEP DISORDER
     Route: 065
     Dates: start: 19840101

REACTIONS (4)
  - CEREBROVASCULAR ACCIDENT [None]
  - BREAST CANCER [None]
  - MYOCARDIAL INFARCTION [None]
  - HYSTERECTOMY [None]
